FAERS Safety Report 9541953 (Version 1)
Quarter: 2013Q3

REPORT INFORMATION
  Report Type: Report from Study
  Country: CO (occurrence: CO)
  Receive Date: 20130923
  Receipt Date: 20130923
  Transmission Date: 20140515
  Serious: Yes (Hospitalization, Other)
  Sender: FDA-Public Use
  Company Number: PHHY2013CO105174

PATIENT
  Sex: Male

DRUGS (1)
  1. SANDOSTATIN LAR [Suspect]
     Dosage: 30 MG, ONCE A MONTH
     Route: 030
     Dates: start: 20110525

REACTIONS (1)
  - Cardiac failure [Not Recovered/Not Resolved]
